FAERS Safety Report 5336784-8 (Version None)
Quarter: 2007Q2

REPORT INFORMATION
  Report Type: 
  Country: None (occurrence: None)
  Receive Date: 20070529
  Receipt Date: 20070522
  Transmission Date: 20071010
  Serious: Yes (Life-Threatening, Hospitalization)
  Sender: FDA-Public Use
  Company Number: PHRM2007FR00945

PATIENT
  Age: 79 Year
  Sex: Female

DRUGS (5)
  1. ARCALION [Suspect]
     Indication: DEPRESSIVE SYMPTOM
     Dosage: UNK, UNK
     Route: 048
     Dates: start: 20060601, end: 20060619
  2. PRIMPERAN INJ [Suspect]
     Dates: end: 20060619
  3. TRIFLUCAN [Suspect]
     Dates: end: 20060619
  4. DESLORATADINE [Suspect]
     Dosage: 1 DF, QD
     Route: 048
     Dates: start: 20060615, end: 20060619
  5. ESIDRIX [Suspect]
     Dosage: UNK, UNK
     Route: 048
     Dates: end: 20060619

REACTIONS (27)
  - ANTI-SS-A ANTIBODY POSITIVE [None]
  - ANTINUCLEAR ANTIBODY POSITIVE [None]
  - BLOOD URIC ACID INCREASED [None]
  - C-REACTIVE PROTEIN INCREASED [None]
  - CONJUNCTIVITIS [None]
  - DEHYDRATION [None]
  - DERMATITIS BULLOUS [None]
  - EPIDERMOLYSIS [None]
  - ERYTHEMA MULTIFORME [None]
  - FALL [None]
  - FLUID REPLACEMENT [None]
  - GENERAL PHYSICAL HEALTH DETERIORATION [None]
  - HYPERNATRAEMIA [None]
  - INFLAMMATION [None]
  - INJURY [None]
  - LOSS OF CONSCIOUSNESS [None]
  - LUPUS-LIKE SYNDROME [None]
  - PERIORBITAL HAEMATOMA [None]
  - PROTEINURIA [None]
  - PRURITUS [None]
  - PYREXIA [None]
  - RASH ERYTHEMATOUS [None]
  - RENAL FAILURE ACUTE [None]
  - SJOGREN'S SYNDROME [None]
  - STAPHYLOCOCCAL SEPSIS [None]
  - STEVENS-JOHNSON SYNDROME [None]
  - TOXIC SKIN ERUPTION [None]
